FAERS Safety Report 17565730 (Version 7)
Quarter: 2021Q2

REPORT INFORMATION
  Report Type: Spontaneous
  Country: GB (occurrence: GB)
  Receive Date: 20200320
  Receipt Date: 20210625
  Transmission Date: 20210716
  Serious: Yes (Hospitalization, Other)
  Sender: FDA-Public Use
  Company Number: GB-PFIZER INC-2020111771

PATIENT
  Age: 68 Year
  Sex: Male

DRUGS (18)
  1. RAMIPRIL. [Suspect]
     Active Substance: RAMIPRIL
     Dosage: UNK
  2. SACUBITRIL/VALSARTAN [Suspect]
     Active Substance: SACUBITRIL\VALSARTAN
     Dosage: 1 DF, BID 24/26 MG  (ONCE IN 12 HOURS)
     Route: 065
  3. ISMN [Suspect]
     Active Substance: ISOSORBIDE MONONITRATE
     Dosage: UNK
  4. EPLERENONE. [Suspect]
     Active Substance: EPLERENONE
     Dosage: UNK
  5. IVABRADINE [Suspect]
     Active Substance: IVABRADINE
     Dosage: 2.5 MG, BID (ONCE IN 12 HOUR)
     Route: 065
  6. METOLAZON [Concomitant]
     Active Substance: METOLAZONE
     Dosage: 2.5 MG, Q3W
     Route: 065
  7. EPLERENONE. [Suspect]
     Active Substance: EPLERENONE
     Dosage: 25 MG  (GARGEL, TABLET FOR SOLUTION)
  8. METOLAZON [Concomitant]
     Active Substance: METOLAZONE
     Dosage: 2.5 OT, Q3W
     Route: 065
  9. BUMETANIDE. [Concomitant]
     Active Substance: BUMETANIDE
     Dosage: 1 DF (2/1 MG)
  10. BISOPROLOL [Suspect]
     Active Substance: BISOPROLOL
     Dosage: UNK
  11. ISMN [Suspect]
     Active Substance: ISOSORBIDE MONONITRATE
     Dosage: 25 MG QD
  12. BUMETANIDE. [Concomitant]
     Active Substance: BUMETANIDE
     Dosage: 3 OT, BID
     Route: 065
  13. BUMETANIDE. [Concomitant]
     Active Substance: BUMETANIDE
     Dosage: 1 DF (3/2 MG)
  14. BUMETANIDE. [Concomitant]
     Active Substance: BUMETANIDE
     Dosage: 3 MG, BID (ONCE IN 12 HOURS)
  15. RAMIPRIL. [Suspect]
     Active Substance: RAMIPRIL
     Dosage: 2.5 MG
  16. BISOPROLOL [Suspect]
     Active Substance: BISOPROLOL
     Dosage: 7.5 MG
     Route: 065
  17. SACUBITRIL/VALSARTAN [Suspect]
     Active Substance: SACUBITRIL\VALSARTAN
     Dosage: 2 DF, BID 49/51 MG (ONCE IN 12 HOURS)
     Route: 065
  18. IVABRADINE [Suspect]
     Active Substance: IVABRADINE
     Dosage: UNK, BID

REACTIONS (8)
  - Blood pressure systolic decreased [Unknown]
  - Oedema peripheral [Unknown]
  - Glomerular filtration rate decreased [Unknown]
  - Blood potassium increased [Unknown]
  - Venous pressure jugular increased [Unknown]
  - Dizziness [Unknown]
  - Blood pressure decreased [Unknown]
  - Sinus bradycardia [Unknown]

NARRATIVE: CASE EVENT DATE: 2020
